FAERS Safety Report 8989956 (Version 1)
Quarter: 2012Q4

REPORT INFORMATION
  Report Type: 
  Country: SA (occurrence: SA)
  Receive Date: 20121228
  Receipt Date: 20121228
  Transmission Date: 20130627
  Serious: Yes (Other)
  Sender: FDA-Public Use
  Company Number: SA-ALLERGAN-1217923US

PATIENT
  Age: 4 Year
  Sex: Male
  Weight: 18.4 kg

DRUGS (1)
  1. PHENYLEPHRINE [Suspect]
     Indication: DILATATION PUPILLARY
     Dosage: 2 Gtt, UNK
     Route: 047

REACTIONS (4)
  - Hypertension [Unknown]
  - Acute pulmonary oedema [Recovered/Resolved]
  - Tachycardia [Recovered/Resolved]
  - Systemic leakage [None]
